FAERS Safety Report 20562208 (Version 2)
Quarter: 2022Q2

REPORT INFORMATION
  Report Type: Report from Study
  Country: US (occurrence: US)
  Receive Date: 20220307
  Receipt Date: 20220404
  Transmission Date: 20220720
  Serious: Yes (Hospitalization, Other)
  Sender: FDA-Public Use
  Company Number: US-TAKEDA-2022TUS000563

PATIENT
  Sex: Male

DRUGS (1)
  1. MARIBAVIR [Suspect]
     Active Substance: MARIBAVIR
     Indication: Product used for unknown indication
     Dosage: 2 DOSAGE FORM, BID
     Route: 048
     Dates: start: 20211208

REACTIONS (6)
  - Cytomegalovirus infection [Unknown]
  - Night sweats [Unknown]
  - Pruritus [Unknown]
  - Rash macular [Unknown]
  - Drug ineffective [Unknown]
  - Therapy interrupted [Unknown]
